FAERS Safety Report 11672144 (Version 1)
Quarter: 2015Q4

REPORT INFORMATION
  Report Type: Spontaneous
  Country: US (occurrence: US)
  Receive Date: 20151027
  Receipt Date: 20151027
  Transmission Date: 20160304
  Serious: No
  Sender: FDA-Public Use
  Company Number: US-ELI_LILLY_AND_COMPANY-US201006004812

PATIENT
  Age: 76 Year
  Sex: Female

DRUGS (1)
  1. FORTEO [Suspect]
     Active Substance: TERIPARATIDE
     Indication: ARTHROPATHY
     Dosage: 20 UG, DAILY (1/D)
     Route: 065
     Dates: start: 2009, end: 2010

REACTIONS (4)
  - Pain in jaw [Recovered/Resolved]
  - Tooth discolouration [Unknown]
  - Night sweats [Unknown]
  - Tooth injury [Unknown]

NARRATIVE: CASE EVENT DATE: 201004
